FAERS Safety Report 9563142 (Version 1)
Quarter: 2013Q3

REPORT INFORMATION
  Report Type: Spontaneous
  Country: US (occurrence: US)
  Receive Date: 20130927
  Receipt Date: 20130927
  Transmission Date: 20140515
  Serious: No
  Sender: FDA-Public Use
  Company Number: US-BRISTOL-MYERS SQUIBB COMPANY-17388992

PATIENT
  Age: 74 Year
  Sex: Female

DRUGS (10)
  1. ONGLYZA TABS [Suspect]
  2. LANTUS [Concomitant]
  3. METFORMIN [Concomitant]
  4. DIGOXIN [Concomitant]
  5. HYDROCHLOROTHIAZIDE [Concomitant]
  6. METOPROLOL [Concomitant]
  7. RANITIDINE [Concomitant]
  8. ASPIRIN [Concomitant]
  9. LISINOPRIL [Concomitant]
  10. PHENERGAN [Concomitant]

REACTIONS (1)
  - Blood glucose abnormal [Unknown]
